FAERS Safety Report 15612525 (Version 1)
Quarter: 2018Q4

REPORT INFORMATION
  Report Type: Spontaneous
  Country: US (occurrence: US)
  Receive Date: 20181113
  Receipt Date: 20181113
  Transmission Date: 20190205
  Serious: No
  Sender: FDA-Public Use
  Company Number: US-BIOGEN-2018BI00658446

PATIENT
  Age: 48 Year
  Sex: Female

DRUGS (1)
  1. TYSABRI [Suspect]
     Active Substance: NATALIZUMAB
     Indication: MULTIPLE SCLEROSIS
     Route: 048
     Dates: start: 201204, end: 201405

REACTIONS (2)
  - Carpal tunnel syndrome [Unknown]
  - Incontinence [Unknown]

NARRATIVE: CASE EVENT DATE: 20120620
